FAERS Safety Report 7946317-5 (Version None)
Quarter: 2011Q4

REPORT INFORMATION
  Report Type: 
  Country: None (occurrence: None)
  Receive Date: 20111122
  Receipt Date: 20111109
  Transmission Date: 20120403
  Serious: Yes (Hospitalization)
  Sender: FDA-Public Use
  Company Number: 2011SP044596

PATIENT
  Age: 82 Year
  Sex: Female
  Weight: 70 kg

DRUGS (18)
  1. TEMOZOLOMIDE [Suspect]
     Indication: GLIOBLASTOMA
     Dosage: 235 MG;QD;PO, 230 MG/M2;QD;PO, 200 MG;QD
     Route: 048
     Dates: end: 20110929
  2. TEMOZOLOMIDE [Suspect]
     Indication: GLIOBLASTOMA
     Dosage: 235 MG;QD;PO, 230 MG/M2;QD;PO, 200 MG;QD
     Route: 048
     Dates: start: 20111031, end: 20111104
  3. TEMOZOLOMIDE [Suspect]
     Indication: GLIOBLASTOMA
     Dosage: 235 MG;QD;PO, 230 MG/M2;QD;PO, 200 MG;QD
     Route: 048
     Dates: start: 20110901, end: 20110905
  4. AVASTIN [Suspect]
     Indication: GLIOBLASTOMA
     Dosage: 10 MG/KG;QOW
     Dates: start: 20110927, end: 20110927
  5. AVASTIN [Suspect]
     Indication: GLIOBLASTOMA
     Dosage: 10 MG/KG;QOW
     Dates: start: 20110908
  6. AVASTIN [Suspect]
     Indication: GLIOBLASTOMA
     Dosage: 10 MG/KG;QOW
     Dates: start: 20111013, end: 20111013
  7. VOGALENE [Concomitant]
  8. CRESTOR [Concomitant]
  9. IMOVANE [Concomitant]
  10. EDUCTYL [Concomitant]
  11. AMLODIPINE BESYLATE [Concomitant]
  12. PLAVIX [Concomitant]
  13. POTASSIUM CHLORIDE [Concomitant]
  14. DEBRIDAT [Concomitant]
  15. DUPHALAC [Concomitant]
  16. LEVOTHYROXINE SODIUM [Concomitant]
  17. ZOFRAN [Concomitant]
  18. ATORVASTATIN CALCIUM [Concomitant]

REACTIONS (5)
  - ISCHAEMIC STROKE [None]
  - BRADYCARDIA [None]
  - FRONTOTEMPORAL DEMENTIA [None]
  - BLOOD BRAIN BARRIER DEFECT [None]
  - SUBILEUS [None]
